FAERS Safety Report 16083387 (Version 2)
Quarter: 2019Q2

REPORT INFORMATION
  Report Type: Report from Study
  Country: JP (occurrence: JP)
  Receive Date: 20190318
  Receipt Date: 20190501
  Transmission Date: 20190711
  Serious: No
  Sender: FDA-Public Use
  Company Number: JP-BAUSCH-BL-2019-008293

PATIENT
  Age: 82 Year
  Sex: Male

DRUGS (4)
  1. CHOREAZINE [Suspect]
     Active Substance: TETRABENAZINE
     Indication: HUNTINGTON^S DISEASE
     Route: 048
     Dates: start: 20180221, end: 20180227
  2. CHOREAZINE [Suspect]
     Active Substance: TETRABENAZINE
     Route: 048
     Dates: start: 20180228, end: 20180313
  3. LIPITOR [Concomitant]
     Active Substance: ATORVASTATIN CALCIUM
     Indication: PRODUCT USED FOR UNKNOWN INDICATION
     Route: 048
     Dates: start: 20180213, end: 20180808
  4. CHOREAZINE [Suspect]
     Active Substance: TETRABENAZINE
     Route: 048
     Dates: start: 20180314, end: 20180807

REACTIONS (3)
  - Dyspnoea exertional [Not Recovered/Not Resolved]
  - Dyspnoea [Recovering/Resolving]
  - Blood urea increased [Recovered/Resolved]

NARRATIVE: CASE EVENT DATE: 2018
